FAERS Safety Report 24968138 (Version 1)
Quarter: 2025Q1

REPORT INFORMATION
  Report Type: Spontaneous
  Country: CN (occurrence: CN)
  Receive Date: 20250214
  Receipt Date: 20250214
  Transmission Date: 20250409
  Serious: Yes (Other)
  Sender: ROCHE
  Company Number: CN-BoehringerIngelheim-2025-BI-007541

PATIENT
  Age: 80 Year
  Sex: Female
  Weight: 54 kg

DRUGS (2)
  1. ALTEPLASE [Suspect]
     Active Substance: ALTEPLASE
     Indication: Thrombolysis
     Dosage: 15% OF THE ?TOTAL DOSE 32.4 MG
     Route: 042
     Dates: start: 20250118, end: 20250118
  2. ALTEPLASE [Suspect]
     Active Substance: ALTEPLASE
     Dosage: 85% OF THE ?TOTAL DOSE 32.4 MG
     Route: 042
     Dates: start: 20250118, end: 20250118

REACTIONS (3)
  - Haematemesis [Recovered/Resolved]
  - Coagulopathy [Recovering/Resolving]
  - Gastrointestinal haemorrhage [Recovering/Resolving]

NARRATIVE: CASE EVENT DATE: 20250118
